FAERS Safety Report 24168705 (Version 1)
Quarter: 2024Q3

REPORT INFORMATION
  Report Type: Report from Study
  Country: CO (occurrence: CO)
  Receive Date: 20240802
  Receipt Date: 20240802
  Transmission Date: 20241016
  Serious: Yes (Death, Other)
  Sender: FERRING
  Company Number: CO-FERRINGPH-2024FE04204

PATIENT

DRUGS (5)
  1. DEGARELIX [Suspect]
     Active Substance: DEGARELIX
     Indication: Prostate cancer
     Dosage: 120 MG
     Route: 058
     Dates: start: 20240712, end: 20240712
  2. ERYTHROPOIETIN [Concomitant]
     Active Substance: ERYTHROPOIETIN
     Route: 065
  3. PREGABALIN [Concomitant]
     Active Substance: PREGABALIN
     Route: 065
  4. AMANTADINE [Concomitant]
     Active Substance: AMANTADINE
     Route: 065
  5. CARBIDOPA AND LEVODOPA [Concomitant]
     Active Substance: CARBIDOPA\LEVODOPA
     Route: 065

REACTIONS (3)
  - Death [Fatal]
  - Vomiting [Unknown]
  - Pyrexia [Unknown]

NARRATIVE: CASE EVENT DATE: 20240716
